FAERS Safety Report 9753054 (Version 2)
Quarter: 2014Q1

REPORT INFORMATION
  Report Type: Spontaneous
  Country: US (occurrence: US)
  Receive Date: 20131213
  Receipt Date: 20140103
  Transmission Date: 20141002
  Serious: Yes (Other)
  Sender: FDA-Public Use
  Company Number: US-PFIZER INC-2013352389

PATIENT
  Age: 55 Year
  Sex: Male
  Weight: 92.97 kg

DRUGS (1)
  1. VIAGRA [Suspect]
     Indication: PROSTATIC DISORDER
     Dosage: 100 MG, 3X/DAY
     Dates: start: 1998, end: 2009

REACTIONS (2)
  - Intervertebral disc protrusion [Not Recovered/Not Resolved]
  - Off label use [Recovered/Resolved]
